FAERS Safety Report 11828365 (Version 3)
Quarter: 2019Q1

REPORT INFORMATION
  Report Type: Report from Study
  Country: TW (occurrence: TW)
  Receive Date: 20151211
  Receipt Date: 20190313
  Transmission Date: 20190417
  Serious: Yes (Other)
  Sender: FDA-Public Use
  Company Number: PHHY2015TW053532

PATIENT
  Age: 69 Year
  Sex: Female

DRUGS (16)
  1. LOSARTAN. [Concomitant]
     Active Substance: LOSARTAN
     Indication: ARRHYTHMIA
     Dosage: 25 MG, UNK
     Route: 048
     Dates: end: 20130815
  2. FAMOTIDINE. [Concomitant]
     Active Substance: FAMOTIDINE
     Indication: GASTRIC ULCER
     Dosage: 20 MG, UNK
     Route: 048
     Dates: start: 20160121
  3. RABEPRAZOLE [Concomitant]
     Active Substance: RABEPRAZOLE
     Indication: GASTRITIS
     Dosage: 20 MG, UNK
     Route: 048
     Dates: end: 20130606
  4. TOPAAL [Concomitant]
     Active Substance: ALGINIC ACID\ALUMINUM HYDROXIDE\MAGNESIUM CARBONATE
     Dosage: 1 DF, UNK
     Route: 048
     Dates: start: 20151029
  5. DEXOPHEN [Concomitant]
     Indication: ASTHMA
     Dosage: 30 MG, UNK
     Route: 048
     Dates: start: 20150806, end: 20150812
  6. LICHIA [Concomitant]
     Indication: GASTRIC ULCER
     Dosage: 1 DF, UNK
     Route: 048
     Dates: start: 20140703, end: 20140706
  7. TOPAAL [Concomitant]
     Active Substance: ALGINIC ACID\ALUMINUM HYDROXIDE\MAGNESIUM CARBONATE
     Indication: GASTRIC ULCER
     Dosage: 2 DF, UNK
     Route: 048
     Dates: start: 20151001, end: 20151007
  8. PREDNISOLONE. [Concomitant]
     Active Substance: PREDNISOLONE
     Indication: ASTHMA
     Dosage: 5 MG, UNK
     Route: 048
     Dates: start: 20150806, end: 20150812
  9. DEXOPHEN [Concomitant]
     Dosage: 30 MG, UNK
     Route: 048
     Dates: start: 20160121, end: 20160128
  10. TASIGNA [Suspect]
     Active Substance: NILOTINIB
     Indication: CHRONIC MYELOID LEUKAEMIA
     Dosage: 600 OT, UNK
     Route: 048
     Dates: start: 20121127
  11. SPIRONOLACTONE. [Concomitant]
     Active Substance: SPIRONOLACTONE
     Indication: ARRHYTHMIA
     Dosage: 25 MG, UNK
     Route: 048
     Dates: end: 20130815
  12. FENOTEROL [Concomitant]
     Active Substance: FENOTEROL
     Indication: ASTHMA
     Dosage: 2.5 MG, UNK
     Route: 048
     Dates: start: 20160121, end: 20160128
  13. HYZAAR [Concomitant]
     Active Substance: HYDROCHLOROTHIAZIDE\LOSARTAN POTASSIUM
     Indication: HYPERTENSION
     Dosage: 6.25/50MG
     Route: 048
     Dates: start: 20130725, end: 20130822
  14. RAMIPRIL. [Concomitant]
     Active Substance: RAMIPRIL
     Indication: HYPERTENSION
     Dosage: 2.5 MG, UNK
     Route: 048
     Dates: start: 20130926
  15. FAMOTIDINE. [Concomitant]
     Active Substance: FAMOTIDINE
     Indication: ARRHYTHMIA
     Dosage: 20 MG, UNK
     Route: 048
     Dates: end: 20130815
  16. SERETIDE [Concomitant]
     Active Substance: FLUTICASONE PROPIONATE\SALMETEROL XINAFOATE
     Indication: ASTHMA
     Dosage: 1 DF (PUFF), UNK
     Route: 055
     Dates: start: 20160121

REACTIONS (6)
  - Mitral valve incompetence [Recovering/Resolving]
  - Left ventricular dysfunction [Recovering/Resolving]
  - Ventricular extrasystoles [Recovering/Resolving]
  - Aortic valve incompetence [Recovering/Resolving]
  - Dilatation ventricular [Recovering/Resolving]
  - Tricuspid valve incompetence [Recovering/Resolving]

NARRATIVE: CASE EVENT DATE: 20130327
